FAERS Safety Report 10400884 (Version 1)
Quarter: 2014Q3

REPORT INFORMATION
  Report Type: Spontaneous
  Country: US (occurrence: US)
  Receive Date: 20140821
  Receipt Date: 20140821
  Transmission Date: 20150326
  Serious: Yes (Hospitalization)
  Sender: FDA-Public Use
  Company Number: US-B.I. PHARMACEUTICALS,INC./RIDGEFIELD-2014-BI-38227BP

PATIENT
  Age: 69 Year
  Sex: Male

DRUGS (11)
  1. DIGOXIN. [Concomitant]
     Active Substance: DIGOXIN
     Dosage: 0.25 MG
     Route: 065
  2. DILTIAZEM [Concomitant]
     Active Substance: DILTIAZEM
     Dosage: 180 MG
     Route: 065
  3. ENALAPRIL [Concomitant]
     Active Substance: ENALAPRIL
     Dosage: 5 MG
     Route: 065
  4. GLIPIZIDE. [Concomitant]
     Active Substance: GLIPIZIDE
     Dosage: 2.5 MG
     Route: 065
  5. PRAVASTATIN [Concomitant]
     Active Substance: PRAVASTATIN\PRAVASTATIN SODIUM
     Dosage: 40 MG
     Route: 065
  6. METFORMIN [Concomitant]
     Active Substance: METFORMIN HYDROCHLORIDE
     Dosage: 1000 MG
     Route: 065
  7. ASPIRIN. [Suspect]
     Active Substance: ASPIRIN
     Indication: ATRIAL FIBRILLATION
     Dosage: 325 MG
     Route: 065
  8. METOPROLOL [Concomitant]
     Active Substance: METOPROLOL
     Route: 065
  9. LASIX [Concomitant]
     Active Substance: FUROSEMIDE
     Dosage: 40 MG
     Route: 065
  10. ZETIA [Concomitant]
     Active Substance: EZETIMIBE
     Dosage: 10 MG
     Route: 065
  11. PRADAXA [Suspect]
     Active Substance: DABIGATRAN ETEXILATE MESYLATE
     Indication: ATRIAL FIBRILLATION
     Dosage: 300 MG
     Route: 065
     Dates: end: 20120805

REACTIONS (3)
  - Bradycardia [Unknown]
  - Anaemia [Not Recovered/Not Resolved]
  - Gastrointestinal haemorrhage [Unknown]

NARRATIVE: CASE EVENT DATE: 201207
